FAERS Safety Report 7578097-X (Version None)
Quarter: 2011Q2

REPORT INFORMATION
  Report Type: 
  Country: None (occurrence: None)
  Receive Date: 20110628
  Receipt Date: 20110613
  Transmission Date: 20111010
  Serious: Yes (Other)
  Sender: FDA-Public Use
  Company Number: US-ARROW GEN-2011-09023

PATIENT
  Age: 52 Year
  Sex: Female

DRUGS (1)
  1. MELOXICAM [Suspect]
     Indication: OSTEOARTHRITIS
     Dosage: 15 MG, DAILY FOR SEVERAL YEARS

REACTIONS (3)
  - SMALL INTESTINE ULCER [None]
  - GASTROINTESTINAL HAEMORRHAGE [None]
  - SMALL INTESTINAL STENOSIS [None]
